FAERS Safety Report 6791139-4 (Version None)
Quarter: 2010Q2

REPORT INFORMATION
  Report Type: 
  Country: None (occurrence: None)
  Receive Date: 20100623
  Receipt Date: 20100623
  Transmission Date: 20101027
  Serious: Yes (Other)
  Sender: FDA-Public Use
  Company Number: None

PATIENT
  Sex: Male
  Weight: 63.9572 kg

DRUGS (10)
  1. SUTENT [Suspect]
     Indication: NEOPLASM MALIGNANT
     Dates: start: 20100406, end: 20100622
  2. SUTENT [Suspect]
     Indication: RENAL NEOPLASM
     Dates: start: 20100406, end: 20100622
  3. PLAVIX [Concomitant]
  4. ASPIRIN [Concomitant]
  5. IBUPROFEN [Concomitant]
  6. PROMETHAZINE [Concomitant]
  7. FUROSEMIDE [Concomitant]
  8. OXYCONTIN [Concomitant]
  9. TYLENOL [Concomitant]
  10. LANSOPRAZOLE [Concomitant]

REACTIONS (2)
  - ERYTHEMA [None]
  - IMMOBILE [None]
